FAERS Safety Report 10961168 (Version 1)
Quarter: 2015Q1

REPORT INFORMATION
  Report Type: Spontaneous
  Country: US (occurrence: US)
  Receive Date: 20150327
  Receipt Date: 20150327
  Transmission Date: 20150721
  Serious: Yes (Death)
  Sender: FDA-Public Use
  Company Number: US-CIPLA LTD.-2015US02371

PATIENT

DRUGS (5)
  1. AMLODIPINE [Suspect]
     Active Substance: AMLODIPINE BESYLATE
  2. LOSARTAN [Suspect]
     Active Substance: LOSARTAN
  3. FUROSEMIDE. [Suspect]
     Active Substance: FUROSEMIDE
  4. METOPROLOL [Suspect]
     Active Substance: METOPROLOL
  5. WARFARIN [Suspect]
     Active Substance: WARFARIN

REACTIONS (1)
  - Medication error [Fatal]
